FAERS Safety Report 5201125-3 (Version None)
Quarter: 2007Q1

REPORT INFORMATION
  Report Type: 
  Country: None (occurrence: None)
  Receive Date: 20070103
  Receipt Date: 20061222
  Transmission Date: 20070707
  Serious: Yes (Death, Life-Threatening)
  Sender: FDA-Public Use
  Company Number: 062-20785-06060539

PATIENT
  Age: 57 Year
  Sex: Male

DRUGS (2)
  1. THALIDOMIDE [Suspect]
     Indication: AMYOTROPHIC LATERAL SCLEROSIS
     Dosage: 100-400MG, 1 IN 1 D, ORAL
     Route: 048
     Dates: start: 20060220, end: 20060508
  2. RILUTEK [Concomitant]

REACTIONS (23)
  - ARRHYTHMIA [None]
  - ARTERIOSCLEROSIS [None]
  - BULBAR PALSY [None]
  - CARDIAC FAILURE [None]
  - CARDIOMEGALY [None]
  - COR PULMONALE [None]
  - CORONARY ARTERY STENOSIS [None]
  - DISEASE PROGRESSION [None]
  - EMPHYSEMA [None]
  - HEPATIC CONGESTION [None]
  - HYPOVENTILATION [None]
  - ISCHAEMIA [None]
  - PLEURAL CALCIFICATION [None]
  - PULMONARY CONGESTION [None]
  - PULMONARY FIBROSIS [None]
  - QUADRIPLEGIA [None]
  - RENAL DISORDER [None]
  - SHOCK [None]
  - SINUS BRADYCARDIA [None]
  - SPLEEN CONGESTION [None]
  - SUDDEN CARDIAC DEATH [None]
  - SUDDEN DEATH [None]
  - THROMBOSIS [None]
